FAERS Safety Report 7455827-9 (Version None)
Quarter: 2011Q2

REPORT INFORMATION
  Report Type: 
  Country: None (occurrence: None)
  Receive Date: 20110503
  Receipt Date: 20110426
  Transmission Date: 20111010
  Serious: Yes (Hospitalization, Other)
  Sender: FDA-Public Use
  Company Number: PHHY2011US01326

PATIENT
  Sex: Female

DRUGS (7)
  1. KLONOPIN [Concomitant]
     Dosage: 2 MG, UNK
  2. TOPAMAX [Concomitant]
     Dosage: 200 MG, QD
  3. NUCYNTA [Concomitant]
     Dosage: 100 MG, QID
  4. TRAZODONE HCL [Concomitant]
     Dosage: 300 MG, UNK
  5. ZOFRAN [Concomitant]
     Dosage: 8 MG, PRN
  6. GILENYA [Suspect]
     Indication: MULTIPLE SCLEROSIS
     Dosage: 0.5 MG, QD
     Route: 048
     Dates: start: 20110104
  7. CITRO-MAG [Concomitant]
     Indication: NAUSEA
     Dosage: 1 MG, Q2-3 HRS

REACTIONS (10)
  - RETCHING [None]
  - GASTROINTESTINAL DISORDER [None]
  - VOMITING [None]
  - MALAISE [None]
  - DECREASED APPETITE [None]
  - WEIGHT DECREASED [None]
  - DISTURBANCE IN ATTENTION [None]
  - NAUSEA [None]
  - THROAT TIGHTNESS [None]
  - DEHYDRATION [None]
